FAERS Safety Report 8838622 (Version 1)
Quarter: 2012Q4

REPORT INFORMATION
  Report Type: 
  Country: US (occurrence: US)
  Receive Date: 20121012
  Receipt Date: 20121012
  Transmission Date: 20130627
  Serious: No
  Sender: FDA-Public Use
  Company Number: US-ASTRAZENECA-2012SE74086

PATIENT
  Sex: Female
  Weight: 68.5 kg

DRUGS (7)
  1. NEXIUM [Suspect]
     Route: 048
  2. LISINOPRIL [Suspect]
     Route: 048
  3. LIPITOR [Suspect]
     Route: 065
  4. ARTANE [Suspect]
     Route: 065
  5. ALPRAZOLAM [Suspect]
     Route: 065
  6. HCTZ [Suspect]
     Route: 065
  7. AZITHROMYCIN [Concomitant]

REACTIONS (3)
  - Hypertension [Unknown]
  - Hyperlipidaemia [Unknown]
  - Dyspepsia [Unknown]
